FAERS Safety Report 25609764 (Version 2)
Quarter: 2025Q4

REPORT INFORMATION
  Report Type: Spontaneous
  Country: US (occurrence: US)
  Receive Date: 20250728
  Receipt Date: 20251031
  Transmission Date: 20260118
  Serious: No
  Sender: Tarsus Pharmaceuticals
  Company Number: US-TARSUS PHARMACEUTICALS-TSP-US-2025-000509

PATIENT

DRUGS (1)
  1. XDEMVY [Suspect]
     Active Substance: LOTILANER
     Indication: Ocular demodicosis
     Dosage: 1 DROP, BID (INSTILL ONE DROP IN EACH EYE TWICE DAILY)
     Route: 047

REACTIONS (5)
  - Device breakage [Unknown]
  - Wrong technique in product usage process [Unknown]
  - Product dose omission in error [Unknown]
  - Product use complaint [Unknown]
  - Product temperature excursion issue [Unknown]
